FAERS Safety Report 6952065-0 (Version None)
Quarter: 2010Q3

REPORT INFORMATION
  Report Type: 
  Country: None (occurrence: None)
  Receive Date: 20100829
  Receipt Date: 20100420
  Transmission Date: 20110219
  Serious: No
  Sender: FDA-Public Use
  Company Number: US-ABBOTT-10P-163-0640696-00

PATIENT
  Sex: Female
  Weight: 51.756 kg

DRUGS (2)
  1. NIASPAN [Suspect]
     Indication: HYPERLIPIDAEMIA
     Dates: start: 20100418
  2. LOTREL [Concomitant]
     Indication: HYPERTENSION

REACTIONS (3)
  - FLUSHING [None]
  - PALPITATIONS [None]
  - PRURITUS [None]
